FAERS Safety Report 9324469 (Version 1)
Quarter: 2013Q2

REPORT INFORMATION
  Report Type: Spontaneous
  Country: US (occurrence: None)
  Receive Date: 20130531
  Receipt Date: 20130531
  Transmission Date: 20140414
  Serious: Yes (Hospitalization)
  Sender: FDA-Public Use
  Company Number: None

PATIENT
  Age: 64 Year
  Sex: Female
  Weight: 65.2 kg

DRUGS (7)
  1. FLEBOGAMMA [Suspect]
  2. LISINOPRIL [Concomitant]
  3. METHYLPREDNISOLONE [Concomitant]
  4. COREG [Concomitant]
  5. PYRIDOSTIGMINE [Concomitant]
  6. PEPCID [Concomitant]
  7. PROTONIX [Concomitant]

REACTIONS (1)
  - Laboratory test abnormal [None]
